FAERS Safety Report 7174906-7 (Version None)
Quarter: 2010Q4

REPORT INFORMATION
  Report Type: 
  Country: None (occurrence: None)
  Receive Date: 20101220
  Receipt Date: 20100105
  Transmission Date: 20110411
  Serious: Yes (Hospitalization, Other)
  Sender: FDA-Public Use
  Company Number: US-ASTRAZENECA-2009SE13030

PATIENT
  Age: 15035 Day
  Sex: Male
  Weight: 113.4 kg

DRUGS (14)
  1. SEROQUEL [Suspect]
     Indication: MENTAL DISORDER
     Route: 048
     Dates: start: 19970101, end: 20080101
  2. SEROQUEL [Suspect]
     Dosage: 200 MG 1 TABLET IN THE MORNING AND 600 MG 3 TABLET IN THE EVENING OR AT NIGHT
     Route: 048
     Dates: start: 20031101
  3. LOXITANE [Concomitant]
     Dosage: 50 MG IN MORNING, 25 MG EVENING
     Route: 048
     Dates: start: 20031101
  4. RISPERDAL [Concomitant]
     Route: 048
     Dates: start: 20031101
  5. RISPERDAL [Concomitant]
     Route: 048
     Dates: start: 20030101
  6. HYDROCHLOROTHIAZIDE [Concomitant]
     Route: 048
     Dates: start: 20030101
  7. PLENDIL [Concomitant]
     Route: 048
     Dates: start: 20031101
  8. CLOZARIL [Concomitant]
     Dates: start: 19800101
  9. HALDOL [Concomitant]
     Dates: start: 19800101
  10. THORAZINE [Concomitant]
     Dates: start: 19800101
  11. ZYPREXA [Concomitant]
     Dates: start: 20030101
  12. ATARAX [Concomitant]
     Dates: start: 20010101
  13. ATARAX [Concomitant]
     Dates: start: 20031101
  14. ESKALITH [Concomitant]
     Dosage: 450 X 4,  2 TABLETS IN THE MORNING AND 2 TABLETS IN THE EVENING
     Dates: start: 20031101

REACTIONS (5)
  - BLOOD CHOLESTEROL INCREASED [None]
  - DIABETIC COMA [None]
  - DIABETIC HYPEROSMOLAR COMA [None]
  - NEPHROGENIC DIABETES INSIPIDUS [None]
  - TYPE 2 DIABETES MELLITUS [None]
